FAERS Safety Report 9732593 (Version 1)
Quarter: 2013Q4

REPORT INFORMATION
  Report Type: Spontaneous
  Country: JP (occurrence: JP)
  Receive Date: 20131205
  Receipt Date: 20131205
  Transmission Date: 20140711
  Serious: Yes (Other)
  Sender: FDA-Public Use
  Company Number: JP-BAYER-2013-146273

PATIENT
  Age: 60 Year
  Sex: Female

DRUGS (1)
  1. GLUCOBAY [Suspect]
     Indication: DIABETES MELLITUS
     Route: 048

REACTIONS (1)
  - Frontotemporal dementia [None]
